FAERS Safety Report 4355621-1 (Version None)
Quarter: 2004Q2

REPORT INFORMATION
  Report Type: 
  Country: None (occurrence: None)
  Receive Date: 20040505
  Receipt Date: 20040422
  Transmission Date: 20050107
  Serious: Yes (Life-Threatening, Hospitalization)
  Sender: FDA-Public Use
  Company Number: 2004AP02205

PATIENT
  Sex: Female

DRUGS (5)
  1. ROSUVASTATIN [Suspect]
     Indication: HYPERCHOLESTEROLAEMIA
     Dosage: 10 MG DAILY PO
     Route: 048
     Dates: start: 20040121, end: 20040127
  2. ASPIRIN TAB [Concomitant]
  3. STUGERON [Concomitant]
  4. PHENSEDYL [Concomitant]
  5. ZOCOR [Concomitant]

REACTIONS (2)
  - LOSS OF CONSCIOUSNESS [None]
  - SUBARACHNOID HAEMORRHAGE [None]
